FAERS Safety Report 17819723 (Version 1)
Quarter: 2020Q2

REPORT INFORMATION
  Report Type: Spontaneous
  Country: FR (occurrence: FR)
  Receive Date: 20200524
  Receipt Date: 20200524
  Transmission Date: 20200714
  Serious: Yes (Other)
  Sender: FDA-Public Use
  Company Number: FR-ELI_LILLY_AND_COMPANY-FR202005005644

PATIENT
  Age: 68 Year
  Sex: Male
  Weight: 85 kg

DRUGS (5)
  1. SPECIAFOLDINE [Concomitant]
     Active Substance: FOLIC ACID
     Indication: CHEMOTHERAPY SIDE EFFECT PROPHYLAXIS
     Dosage: 0.4 MG, DAILY
     Route: 048
     Dates: start: 20200325
  2. ALIMTA [Suspect]
     Active Substance: PEMETREXED DISODIUM
     Indication: LUNG ADENOCARCINOMA
     Dosage: 950 MG, CYCLICAL
     Route: 042
     Dates: start: 20200401, end: 20200401
  3. CARBOPLATINE [Suspect]
     Active Substance: CARBOPLATIN
     Indication: LUNG ADENOCARCINOMA
     Dosage: 440 MG, CYCLICAL
     Route: 042
     Dates: start: 20200401, end: 20200401
  4. VITAMINE B12 [Concomitant]
     Active Substance: CYANOCOBALAMIN
     Indication: CHEMOTHERAPY SIDE EFFECT PROPHYLAXIS
     Dosage: UNK, UNKNOWN
     Route: 030
     Dates: start: 20200325
  5. TEVAGRASTIM [Suspect]
     Active Substance: FILGRASTIM
     Indication: COLONY STIMULATING FACTOR THERAPY
     Dosage: 1 INJECTION, DAILY
     Route: 058
     Dates: start: 20200402, end: 20200406

REACTIONS (2)
  - Erythema [Recovered/Resolved]
  - Pruritus [Recovering/Resolving]

NARRATIVE: CASE EVENT DATE: 20200414
